FAERS Safety Report 6088451-3 (Version None)
Quarter: 2009Q1

REPORT INFORMATION
  Report Type: 
  Country: None (occurrence: None)
  Receive Date: 20090220
  Receipt Date: 20090220
  Transmission Date: 20090719
  Serious: Yes (Other)
  Sender: FDA-Public Use
  Company Number: None

PATIENT
  Age: 54 Year
  Sex: Female
  Weight: 49.8957 kg

DRUGS (1)
  1. ACTONEL [Suspect]
     Indication: OSTEOPOROSIS
     Dosage: ONE TABLET A WEEK WEEKLY PO
     Route: 048
     Dates: start: 20071210, end: 20081222

REACTIONS (4)
  - ARTHRALGIA [None]
  - BACK PAIN [None]
  - MYALGIA [None]
  - PARAESTHESIA [None]
